FAERS Safety Report 7581919-X (Version None)
Quarter: 2011Q2

REPORT INFORMATION
  Report Type: 
  Country: None (occurrence: None)
  Receive Date: 20110629
  Receipt Date: 20110624
  Transmission Date: 20111010
  Serious: Yes (Death, Life-Threatening, Other)
  Sender: FDA-Public Use
  Company Number: JP-CELGENEUS-087-50794-11053858

PATIENT
  Sex: Male

DRUGS (2)
  1. VIDAZA [Suspect]
  2. VIDAZA [Suspect]
     Dosage: 75 MILLIGRAM/SQ. METER
     Route: 058
     Dates: start: 20110509, end: 20110515

REACTIONS (3)
  - RENAL FAILURE [None]
  - LACTIC ACIDOSIS [None]
  - PNEUMONIA ASPIRATION [None]
